FAERS Safety Report 15005157 (Version 1)
Quarter: 2018Q2

REPORT INFORMATION
  Report Type: Spontaneous
  Country: US (occurrence: US)
  Receive Date: 20180521
  Receipt Date: 20180521
  Transmission Date: 20180711
  Serious: Yes (Hospitalization)
  Sender: FDA-Public Use
  Company Number: None

PATIENT
  Age: 59 Year
  Sex: Male
  Weight: 176 kg

DRUGS (12)
  1. LOPRESSOR [Concomitant]
     Active Substance: METOPROLOL TARTRATE
  2. BACLOFEN. [Suspect]
     Active Substance: BACLOFEN
  3. MIRALAX [Concomitant]
     Active Substance: POLYETHYLENE GLYCOL 3350
  4. HYDRALAZINE [Concomitant]
     Active Substance: HYDRALAZINE HYDROCHLORIDE
  5. METHADONE [Suspect]
     Active Substance: METHADONE HYDROCHLORIDE
     Indication: PAIN
     Route: 048
  6. CLEOCIN [Concomitant]
     Active Substance: CLINDAMYCIN PHOSPHATE
  7. LYRICA [Suspect]
     Active Substance: PREGABALIN
     Indication: PAIN
     Route: 048
  8. DEXTROSE. [Concomitant]
     Active Substance: DEXTROSE
  9. HEPAIN [Concomitant]
  10. OFIRMEV [Concomitant]
     Active Substance: ACETAMINOPHEN
  11. DEX [Concomitant]
     Active Substance: UNSPECIFIED INGREDIENT
  12. AZACTEM [Concomitant]

REACTIONS (7)
  - Somnolence [None]
  - Acute kidney injury [None]
  - Toxicity to various agents [None]
  - Flushing [None]
  - Oxygen saturation decreased [None]
  - Lethargy [None]
  - Overdose [None]

NARRATIVE: CASE EVENT DATE: 20180215
